FAERS Safety Report 5703341-0 (Version None)
Quarter: 2008Q2

REPORT INFORMATION
  Report Type: 
  Country: None (occurrence: None)
  Receive Date: 20080411
  Receipt Date: 20080407
  Transmission Date: 20081010
  Serious: Yes (Other)
  Sender: FDA-Public Use
  Company Number: FR-BOEHRINGER INGELHEIM GMBH, GERMANY-2008-DE-02061GD

PATIENT

DRUGS (5)
  1. PREDNISONE [Suspect]
     Indication: ALLERGIC GRANULOMATOUS ANGIITIS
     Dosage: 1 MG/KG/DAY FOR 3 WEEKS; THEN TAPERED DOWN TO 0.5 MG/KG/DAY, THEN TO 15 MG/DAY AND FINALLY TO THE MI
     Route: 048
  2. POTASSIUM CHLORIDE [Concomitant]
  3. CALCIUM [Concomitant]
  4. VITAMIN D3 [Concomitant]
  5. BISPHOSPHONATES [Concomitant]
     Indication: OSTEOPOROSIS PROPHYLAXIS

REACTIONS (2)
  - DRUG INEFFECTIVE [None]
  - PARAPARESIS [None]
